FAERS Safety Report 5951116-X (Version None)
Quarter: 2008Q4

REPORT INFORMATION
  Report Type: 
  Country: None (occurrence: None)
  Receive Date: 20081112
  Receipt Date: 20081112
  Transmission Date: 20090506
  Serious: Yes (Other)
  Sender: FDA-Public Use
  Company Number: None

PATIENT
  Age: 40 Year
  Sex: Female
  Weight: 56.6996 kg

DRUGS (1)
  1. LEVAQUIN [Suspect]
     Indication: SINUSITIS
     Dosage: 500 MG TABLET 1 A DAY PO
     Route: 048
     Dates: start: 20080520, end: 20080524

REACTIONS (4)
  - EXERCISE LACK OF [None]
  - NO THERAPEUTIC RESPONSE [None]
  - PAIN [None]
  - TENDON RUPTURE [None]
